FAERS Safety Report 11680380 (Version 2)
Quarter: 2015Q4

REPORT INFORMATION
  Report Type: Spontaneous
  Country: US (occurrence: US)
  Receive Date: 20151027
  Receipt Date: 20151104
  Transmission Date: 20160304
  Serious: No
  Sender: FDA-Public Use
  Company Number: US-ELI_LILLY_AND_COMPANY-US201006007789

PATIENT
  Sex: Female
  Weight: 46.26 kg

DRUGS (8)
  1. FORTEO [Suspect]
     Active Substance: TERIPARATIDE
     Dosage: 20 UG, 2/W
     Route: 065
  2. FORTEO [Suspect]
     Active Substance: TERIPARATIDE
     Dosage: 20 UG, WEEKLY (1/W)
     Route: 065
  3. FORTEO [Suspect]
     Active Substance: TERIPARATIDE
     Indication: OSTEOPOROSIS
     Dosage: 20 UG, DAILY (1/D)
     Route: 065
     Dates: start: 20100610
  4. FORTEO [Suspect]
     Active Substance: TERIPARATIDE
     Dosage: 20 UG, WEEKLY (1/W)
     Route: 065
  5. VITAMIN K2 [Concomitant]
     Active Substance: MENAQUINONE 6
     Dosage: UNK, DAILY (1/D)
  6. FORTEO [Suspect]
     Active Substance: TERIPARATIDE
     Dosage: 20 UG, QOD
     Route: 065
     Dates: end: 20100707
  7. FORTEO [Suspect]
     Active Substance: TERIPARATIDE
     Dosage: 20 UG, 3/W
     Route: 065
  8. FORTEO [Suspect]
     Active Substance: TERIPARATIDE
     Dosage: 20 UG, 3/W
     Route: 065

REACTIONS (18)
  - Pain in extremity [Not Recovered/Not Resolved]
  - Oropharyngeal pain [Unknown]
  - Onychoclasis [Unknown]
  - Nasopharyngitis [Unknown]
  - Musculoskeletal pain [Unknown]
  - Intentional product misuse [Recovered/Resolved]
  - Constipation [Recovered/Resolved]
  - Influenza [Unknown]
  - Pain [Recovering/Resolving]
  - Discomfort [Unknown]
  - Bone pain [Recovered/Resolved]
  - Inappropriate schedule of drug administration [Not Recovered/Not Resolved]
  - Arthralgia [Unknown]
  - Feeling abnormal [Unknown]
  - Nasopharyngitis [Recovering/Resolving]
  - Seasonal allergy [Unknown]
  - Nausea [Unknown]
  - Blood calcium increased [Unknown]
